FAERS Safety Report 24274481 (Version 2)
Quarter: 2024Q3

REPORT INFORMATION
  Report Type: Spontaneous
  Country: BG (occurrence: BG)
  Receive Date: 20240902
  Receipt Date: 20240905
  Transmission Date: 20241017
  Serious: Yes (Other)
  Sender: PFIZER
  Company Number: BG-PFIZER INC-PV202400114539

PATIENT
  Age: 51 Year
  Sex: Female

DRUGS (1)
  1. LORLATINIB [Suspect]
     Active Substance: LORLATINIB
     Dosage: 100 MG

REACTIONS (3)
  - Hypertensive crisis [Unknown]
  - Anaemia [Unknown]
  - Diarrhoea [Unknown]
